FAERS Safety Report 4392668-3 (Version None)
Quarter: 2004Q3

REPORT INFORMATION
  Report Type: 
  Country: None (occurrence: None)
  Receive Date: 20040702
  Receipt Date: 20040623
  Transmission Date: 20050211
  Serious: Yes (Hospitalization)
  Sender: FDA-Public Use
  Company Number: DSA_60426_2004

PATIENT
  Age: 39 Year
  Sex: Female

DRUGS (2)
  1. MYSOLINE [Suspect]
     Indication: CONVULSION
     Dates: end: 20000501
  2. VALPROIC ACID [Suspect]
     Indication: CONVULSION
     Dates: end: 20000501

REACTIONS (2)
  - CONVULSION [None]
  - PORPHYRIA ACUTE [None]
